FAERS Safety Report 9539873 (Version 1)
Quarter: 2013Q3

REPORT INFORMATION
  Report Type: Spontaneous
  Country: US (occurrence: US)
  Receive Date: 20130920
  Receipt Date: 20130920
  Transmission Date: 20140515
  Serious: No
  Sender: FDA-Public Use
  Company Number: US-PURDUE-USA-2011-0065521

PATIENT
  Age: 26 Year
  Sex: Female

DRUGS (1)
  1. DILAUDID TABLET [Suspect]
     Indication: PRODUCT USED FOR UNKNOWN INDICATION

REACTIONS (4)
  - Drug withdrawal syndrome [Unknown]
  - Stupor [Unknown]
  - Activities of daily living impaired [Unknown]
  - General physical health deterioration [Unknown]
